FAERS Safety Report 6440316-0 (Version None)
Quarter: 2009Q4

REPORT INFORMATION
  Report Type: 
  Country: None (occurrence: None)
  Receive Date: 20091113
  Receipt Date: 20091105
  Transmission Date: 20100525
  Serious: Yes (Other)
  Sender: FDA-Public Use
  Company Number: US-PFIZER INC-2009296184

PATIENT
  Sex: Female
  Weight: 58.957 kg

DRUGS (5)
  1. LIPITOR [Suspect]
     Indication: BLOOD CHOLESTEROL INCREASED
     Dates: start: 20070101, end: 20090719
  2. LIPITOR [Suspect]
     Indication: HYPERTENSION
  3. CARVEDILOL [Concomitant]
  4. ACETYLSALICYLIC ACID [Concomitant]
  5. HYDROCHLOROTHIAZIDE [Concomitant]

REACTIONS (3)
  - CHOLECYSTECTOMY [None]
  - ILL-DEFINED DISORDER [None]
  - MALAISE [None]
